FAERS Safety Report 7800975-4 (Version None)
Quarter: 2011Q4

REPORT INFORMATION
  Report Type: 
  Country: None (occurrence: None)
  Receive Date: 20111007
  Receipt Date: 20110930
  Transmission Date: 20120403
  Serious: Yes (Other)
  Sender: FDA-Public Use
  Company Number: FI-AMGEN-FINSP2011042096

PATIENT
  Age: 65 Year
  Sex: Male

DRUGS (1)
  1. PROLIA [Suspect]
     Indication: PERIPROSTHETIC OSTEOLYSIS
     Dosage: UNK
     Dates: start: 20110301

REACTIONS (7)
  - HEART VALVE INCOMPETENCE [None]
  - VASCULAR CALCIFICATION [None]
  - ARTERIAL DISORDER [None]
  - ARTHROPATHY [None]
  - CEREBRAL INFARCTION [None]
  - HEART VALVE CALCIFICATION [None]
  - TRANSIENT ISCHAEMIC ATTACK [None]
